FAERS Safety Report 16414743 (Version 1)
Quarter: 2019Q2

REPORT INFORMATION
  Report Type: Spontaneous
  Country: US (occurrence: US)
  Receive Date: 20190611
  Receipt Date: 20190611
  Transmission Date: 20190711
  Serious: Yes (Other)
  Sender: FDA-Public Use
  Company Number: US-PFIZER INC-2019242000

PATIENT
  Age: 54 Year
  Sex: Female

DRUGS (3)
  1. CELEBREX [Suspect]
     Active Substance: CELECOXIB
     Indication: INFLAMMATION
     Dosage: 200 MG, 2X/DAY
     Route: 048
  2. HYDROCHLOROTHIAZIDE. [Concomitant]
     Active Substance: HYDROCHLOROTHIAZIDE
     Indication: HYPERTENSION
     Dosage: 25 MG, 1X/DAY
     Route: 048
  3. XARELTO [Concomitant]
     Active Substance: RIVAROXABAN
     Indication: PULMONARY THROMBOSIS
     Dosage: 20 MG, 1X/DAY
     Route: 048
     Dates: start: 201808

REACTIONS (2)
  - Uterine cancer [Unknown]
  - Thrombosis [Unknown]
